FAERS Safety Report 7125124-X (Version None)
Quarter: 2010Q4

REPORT INFORMATION
  Report Type: 
  Country: None (occurrence: None)
  Receive Date: 20101129
  Receipt Date: 20101018
  Transmission Date: 20110411
  Serious: Yes (Other)
  Sender: FDA-Public Use
  Company Number: US-AMGEN-TCS440320

PATIENT

DRUGS (13)
  1. ENBREL [Suspect]
     Indication: PRODUCT USED FOR UNKNOWN INDICATION
     Dosage: 50 MG, QWK
     Dates: start: 20100623, end: 20100101
  2. LYRICA [Suspect]
     Indication: FIBROMYALGIA
     Dosage: 50 MG, TID
     Route: 048
     Dates: start: 20091201, end: 20100901
  3. PRAVASTATIN [Concomitant]
     Dosage: 40 MG, ONE TIME DOSE
     Dates: start: 20080101
  4. LORTAB [Concomitant]
     Dosage: 10 MG, Q6H
     Dates: start: 20080101
  5. ASPIRIN [Concomitant]
     Dosage: 81 MG, QD
     Dates: start: 20080101
  6. CHLORTHALIDONE [Concomitant]
     Dosage: 25 MG, BID
     Dates: start: 20080101
  7. DICLOFENAC SODIUM [Concomitant]
     Dosage: 75 MG, BID
     Dates: start: 20080101
  8. AMITRIPTYLINE [Concomitant]
     Dosage: 25 MG, QD
     Dates: start: 20080101
  9. CYMBALTA [Concomitant]
     Dosage: 60 MG, QD
     Dates: start: 20080101
  10. CALCIUM D [Concomitant]
     Dosage: 600 MG, QD
     Dates: start: 20080101
  11. LORAZEPAM [Concomitant]
     Dosage: 0.5 MG, TID
     Dates: start: 20080101
  12. VITAMIN B-12 [Concomitant]
     Dosage: 1 ML, QMO
     Dates: start: 20080101
  13. PLAQUENIL                          /00072601/ [Concomitant]
     Dosage: 400 MG, QD
     Dates: start: 20080101

REACTIONS (2)
  - HYPERSENSITIVITY [None]
  - WITHDRAWAL SYNDROME [None]
